FAERS Safety Report 23654231 (Version 2)
Quarter: 2025Q3

REPORT INFORMATION
  Report Type: Spontaneous
  Country: JP (occurrence: JP)
  Receive Date: 20240320
  Receipt Date: 20250725
  Transmission Date: 20251021
  Serious: Yes (Hospitalization)
  Sender: EISAI
  Company Number: JP-Eisai Medical Research-EC-2022-113219

PATIENT
  Age: 67 Year
  Sex: Female

DRUGS (8)
  1. LENVIMA [Suspect]
     Active Substance: LENVATINIB
     Indication: Endometrial cancer
     Dates: start: 20220203, end: 20220209
  2. LENVIMA [Suspect]
     Active Substance: LENVATINIB
     Dates: start: 20220216, end: 20220414
  3. KEYTRUDA [Suspect]
     Active Substance: PEMBROLIZUMAB
     Indication: Endometrial cancer
     Dates: start: 20220203, end: 20220317
  4. DENOSUMAB [Concomitant]
     Active Substance: DENOSUMAB
     Indication: Product used for unknown indication
  5. MEDROXYPROGESTERONE [Concomitant]
     Active Substance: MEDROXYPROGESTERONE
     Indication: Product used for unknown indication
  6. LEVOTHYROXINE SODIUM [Concomitant]
     Active Substance: LEVOTHYROXINE SODIUM
     Indication: Product used for unknown indication
  7. TAPENTADOL HYDROCHLORIDE [Concomitant]
     Active Substance: TAPENTADOL HYDROCHLORIDE
     Indication: Product used for unknown indication
  8. MIROGABALIN BESYLATE [Concomitant]
     Active Substance: MIROGABALIN BESYLATE
     Indication: Product used for unknown indication

REACTIONS (1)
  - Myasthenia gravis [Recovering/Resolving]

NARRATIVE: CASE EVENT DATE: 20220412
